FAERS Safety Report 10513164 (Version 1)
Quarter: 2014Q4

REPORT INFORMATION
  Report Type: Spontaneous
  Country: DE (occurrence: DE)
  Receive Date: 20141013
  Receipt Date: 20141013
  Transmission Date: 20150528
  Serious: Yes (Congenital Anomaly, Other)
  Sender: FDA-Public Use
  Company Number: DE-AUROBINDO-AUR-APL-2014-10606

PATIENT
  Sex: Male
  Weight: 3.79 kg

DRUGS (10)
  1. TREVILOR RETARD [Suspect]
     Active Substance: VENLAFAXINE HYDROCHLORIDE
     Indication: ANXIETY DISORDER
     Dosage: 450 MG, ONCE A DAY
     Dates: start: 20140124, end: 20140315
  2. ZYPREXA [Suspect]
     Active Substance: OLANZAPINE
     Indication: ANXIETY DISORDER
     Dosage: 10 MG, ONCE A DAY
     Route: 064
     Dates: start: 20140124, end: 20140315
  3. FOLIO [Concomitant]
     Active Substance: FOLIC ACID
     Indication: PROPHYLAXIS OF NEURAL TUBE DEFECT
     Dosage: 0.4 MG, ONCE A DAY
     Route: 064
     Dates: start: 20130703, end: 20140315
  4. RISPERDAL [Concomitant]
     Active Substance: RISPERIDONE
     Indication: ANXIETY DISORDER
     Dosage: 2 MG, ONCE A DAY
     Route: 064
     Dates: start: 20131031, end: 20140123
  5. AMITRIPTYLIN [Concomitant]
     Active Substance: AMITRIPTYLINE
     Indication: ANXIETY DISORDER
     Dosage: UNK
     Route: 064
     Dates: start: 20131119, end: 20131220
  6. PAROXETINE 20MG (PAROXETINE) UNKNOWN, 20MG [Suspect]
     Active Substance: PAROXETINE\PAROXETINE HYDROCHLORIDE
     Indication: ANXIETY DISORDER
     Dosage: 20 MG, ONCE A DAY
     Route: 064
     Dates: start: 20130604, end: 20131118
  7. CITALOPRAM [Concomitant]
     Active Substance: CITALOPRAM HYDROBROMIDE
     Dosage: 30 MG, ONCE A DAY
     Route: 064
     Dates: start: 20131220, end: 20140123
  8. DIAZEPAM. [Concomitant]
     Active Substance: DIAZEPAM
     Indication: ANXIETY DISORDER
     Dosage: 10 MG, ONCE A DAY
     Route: 064
     Dates: start: 20131122, end: 20131224
  9. CITALOPRAM [Concomitant]
     Active Substance: CITALOPRAM HYDROBROMIDE
     Indication: ANXIETY DISORDER
     Dosage: 20 MG, ONCE A DAY
     Route: 064
  10. SEROQUEL [Concomitant]
     Active Substance: QUETIAPINE FUMARATE
     Indication: ANXIETY DISORDER
     Dosage: 75 MG, ONCE A DAY
     Route: 064
     Dates: start: 20131220, end: 20131224

REACTIONS (7)
  - Agitation neonatal [Recovered/Resolved]
  - Drug withdrawal syndrome neonatal [Recovered/Resolved]
  - Oxygen saturation decreased [None]
  - Oxygen saturation abnormal [Recovered/Resolved]
  - Restlessness [Recovered/Resolved]
  - Foetal exposure during pregnancy [Unknown]
  - Haemangioma congenital [Unknown]
